FAERS Safety Report 7328891-5 (Version None)
Quarter: 2011Q1

REPORT INFORMATION
  Report Type: 
  Country: None (occurrence: None)
  Receive Date: 20110225
  Receipt Date: 20110225
  Transmission Date: 20110831
  Serious: No
  Sender: FDA-Public Use
  Company Number: None

PATIENT
  Sex: Female
  Weight: 47.1741 kg

DRUGS (1)
  1. SPIRIVA [Suspect]
     Indication: CHRONIC OBSTRUCTIVE PULMONARY DISEASE
     Dosage: 1 DAILY INHAL
     Route: 055
     Dates: start: 20101115, end: 20110220

REACTIONS (7)
  - CANDIDIASIS [None]
  - BLOOD PRESSURE INCREASED [None]
  - OROPHARYNGEAL PAIN [None]
  - DRY MOUTH [None]
  - WEIGHT INCREASED [None]
  - DYSPHONIA [None]
  - URINE FLOW DECREASED [None]
